FAERS Safety Report 19875007 (Version 15)
Quarter: 2022Q3

REPORT INFORMATION
  Report Type: Spontaneous
  Country: US (occurrence: US)
  Receive Date: 20210923
  Receipt Date: 20220927
  Transmission Date: 20221026
  Serious: Yes (Hospitalization, Other)
  Sender: FDA-Public Use
  Company Number: US-GLAXOSMITHKLINE-US2021AMR198926

PATIENT

DRUGS (6)
  1. ZEJULA [Suspect]
     Active Substance: NIRAPARIB
     Indication: Malignant peritoneal neoplasm
     Dosage: 200 MG, QD
     Dates: start: 20210910
  2. ZEJULA [Suspect]
     Active Substance: NIRAPARIB
     Indication: Ovarian cancer
     Dosage: 100 MG, BID
  3. ZEJULA [Suspect]
     Active Substance: NIRAPARIB
     Dosage: 100 MG, QD
  4. ZEJULA [Suspect]
     Active Substance: NIRAPARIB
     Dosage: 200 MG, QD
     Dates: end: 20220830
  5. ZEJULA [Suspect]
     Active Substance: NIRAPARIB
     Dosage: 100 MG, QD
  6. CHANTIX [Concomitant]
     Active Substance: VARENICLINE TARTRATE
     Indication: Ex-tobacco user
     Dosage: UNK

REACTIONS (27)
  - Pulmonary oedema [Unknown]
  - Dyspnoea [Recovered/Resolved]
  - Mastitis [Not Recovered/Not Resolved]
  - Lung neoplasm malignant [Unknown]
  - Breast cyst [Unknown]
  - Recurrent cancer [Unknown]
  - Breast inflammation [Unknown]
  - Insomnia [Not Recovered/Not Resolved]
  - Fatigue [Not Recovered/Not Resolved]
  - Nausea [Recovered/Resolved]
  - Platelet count decreased [Recovered/Resolved]
  - Headache [Not Recovered/Not Resolved]
  - Red blood cell count decreased [Unknown]
  - Back pain [Unknown]
  - Dysphonia [Unknown]
  - Dry throat [Unknown]
  - Haemoglobin decreased [Not Recovered/Not Resolved]
  - Dysarthria [Unknown]
  - Peripheral swelling [Unknown]
  - Movement disorder [Unknown]
  - Carbohydrate antigen 125 increased [Unknown]
  - Constipation [Not Recovered/Not Resolved]
  - Temperature intolerance [Unknown]
  - Photosensitivity reaction [Not Recovered/Not Resolved]
  - Cough [Unknown]
  - Skin discolouration [Unknown]
  - Off label use [Unknown]

NARRATIVE: CASE EVENT DATE: 20210914
